FAERS Safety Report 7123929-2 (Version None)
Quarter: 2010Q4

REPORT INFORMATION
  Report Type: 
  Country: None (occurrence: None)
  Receive Date: 20101126
  Receipt Date: 20101117
  Transmission Date: 20110411
  Serious: Yes (Other)
  Sender: FDA-Public Use
  Company Number: US-PFIZER INC-US-WYE-H18206910

PATIENT
  Sex: Female
  Weight: 66.7 kg

DRUGS (2)
  1. PREMPRO [Suspect]
     Indication: MENOPAUSAL SYMPTOMS
     Dosage: 0.3/1.5 MG
     Route: 065
     Dates: start: 19800101, end: 20080101
  2. PREMPRO [Suspect]
     Dosage: UNK
     Route: 065

REACTIONS (1)
  - BREAST CANCER [None]
